FAERS Safety Report 18453628 (Version 1)
Quarter: 2020Q4

REPORT INFORMATION
  Report Type: Not Available
  Country: None (occurrence: None)
  Receive Date: 20201102
  Receipt Date: 20201102
  Transmission Date: 20210114
  Serious: No
  Sender: FDA-Public Use
  Company Number: US-AKORN-155190

PATIENT
  Age: 37 Year
  Sex: Female

DRUGS (1)
  1. TOBRAMYCIN OPTHALMIC SOLUTION [Suspect]
     Active Substance: TOBRAMYCIN

REACTIONS (3)
  - Pruritus [Unknown]
  - Rash [Unknown]
  - Swelling face [Unknown]
